FAERS Safety Report 20255045 (Version 6)
Quarter: 2022Q4

REPORT INFORMATION
  Report Type: Spontaneous
  Country: JP (occurrence: JP)
  Receive Date: 20211230
  Receipt Date: 20221230
  Transmission Date: 20230113
  Serious: Yes (Other)
  Sender: FDA-Public Use
  Company Number: JP-UNITED THERAPEUTICS-UNT-2021-026450

PATIENT
  Age: 2 Year
  Sex: Male
  Weight: 11.2 kg

DRUGS (6)
  1. UNITUXIN [Suspect]
     Active Substance: DINUTUXIMAB
     Indication: Neuroblastoma
     Dosage: UNK, CYCLICAL (CYCLE 1)
     Route: 041
     Dates: start: 20211210, end: 20211213
  2. UNITUXIN [Suspect]
     Active Substance: DINUTUXIMAB
     Dosage: UNK, CYCLICAL (CYCLE 2)
     Route: 041
     Dates: start: 20220112, end: 20220115
  3. UNITUXIN [Suspect]
     Active Substance: DINUTUXIMAB
     Dosage: UNK, CYCLICAL (CYCLE 3)
     Route: 041
     Dates: start: 20220205, end: 20220208
  4. UNITUXIN [Suspect]
     Active Substance: DINUTUXIMAB
     Dosage: UNK, CYCLICAL (CYCLE 4)
     Route: 041
     Dates: start: 20220314, end: 20220317
  5. FILGRASTIM [Concomitant]
     Active Substance: FILGRASTIM
     Indication: Product used for unknown indication
     Route: 065
  6. TECELEUKIN [Concomitant]
     Active Substance: TECELEUKIN
     Indication: Product used for unknown indication
     Route: 065

REACTIONS (23)
  - Liver function test increased [Recovered/Resolved]
  - Metastases to liver [Unknown]
  - Aspartate aminotransferase increased [Recovering/Resolving]
  - Fatigue [Unknown]
  - Pyrexia [Recovered/Resolved]
  - Pyrexia [Recovered/Resolved]
  - Pyrexia [Recovered/Resolved]
  - Pyrexia [Recovered/Resolved]
  - Pyrexia [Recovered/Resolved]
  - Pain [Recovering/Resolving]
  - Pain [Recovering/Resolving]
  - Gamma-glutamyltransferase increased [Recovered/Resolved]
  - Blood sodium decreased [Recovered/Resolved]
  - C-reactive protein increased [Recovered/Resolved]
  - C-reactive protein increased [Recovered/Resolved]
  - C-reactive protein increased [Recovering/Resolving]
  - Hypoalbuminaemia [Recovered/Resolved]
  - Hypoalbuminaemia [Recovered/Resolved]
  - Face oedema [Recovered/Resolved]
  - Face oedema [Recovered/Resolved]
  - Face oedema [Recovered/Resolved]
  - Face oedema [Recovering/Resolving]
  - Anaemia [Recovering/Resolving]

NARRATIVE: CASE EVENT DATE: 20211210
